FAERS Safety Report 7918446-3 (Version None)
Quarter: 2011Q4

REPORT INFORMATION
  Report Type: 
  Country: None (occurrence: None)
  Receive Date: 20111116
  Receipt Date: 20111110
  Transmission Date: 20120403
  Serious: Yes (Hospitalization)
  Sender: FDA-Public Use
  Company Number: JP-CEPHALON-2011005064

PATIENT
  Age: 65 Year
  Sex: Male
  Weight: 66 kg

DRUGS (8)
  1. SULFAMETHOXAZOLE AND TRIMETHOPRIM [Concomitant]
     Dates: start: 20110804
  2. ITRACONAZOLE [Concomitant]
     Dates: start: 20110804
  3. VALSARTAN [Concomitant]
     Dates: start: 20110928
  4. ALLOPURINOL [Concomitant]
     Dates: start: 20111026
  5. ACYCLOVIR [Concomitant]
     Dates: start: 20110804
  6. RITUXIMAB [Concomitant]
     Dates: start: 20110901, end: 20110930
  7. LAFUTIDINE [Concomitant]
     Dates: start: 20110829
  8. BENDAMUSTINE HCL [Suspect]
     Indication: B-CELL LYMPHOMA
     Route: 042
     Dates: start: 20110805

REACTIONS (4)
  - LIVER DISORDER [None]
  - RASH [None]
  - HYPERSENSITIVITY [None]
  - PYREXIA [None]
